FAERS Safety Report 9481607 (Version 2)
Quarter: 2013Q3

REPORT INFORMATION
  Report Type: Spontaneous
  Country: US (occurrence: US)
  Receive Date: 20130828
  Receipt Date: 20130828
  Transmission Date: 20140515
  Serious: Yes (Hospitalization)
  Sender: FDA-Public Use
  Company Number: US-AMGEN-KDL177040

PATIENT
  Age: 60 Year
  Sex: Female

DRUGS (2)
  1. ENBREL [Suspect]
     Indication: ANKYLOSING SPONDYLITIS
     Dosage: 50 MG, QWK
     Route: 058
     Dates: start: 200601
  2. METHOTREXATE [Concomitant]
     Dosage: 17.5 MG, QWK
     Dates: start: 2005

REACTIONS (4)
  - Drug hypersensitivity [Recovered/Resolved]
  - Gastric disorder [Recovered/Resolved]
  - Drug interaction [Unknown]
  - Gastrointestinal infection [Unknown]
